FAERS Safety Report 21335353 (Version 1)
Quarter: 2022Q3

REPORT INFORMATION
  Report Type: Report from Study
  Country: US (occurrence: US)
  Receive Date: 20220915
  Receipt Date: 20220915
  Transmission Date: 20221027
  Serious: Yes (Other)
  Sender: FDA-Public Use
  Company Number: US-SA-SAC20220527002009

PATIENT
  Age: 26 Year
  Sex: Female

DRUGS (3)
  1. ISATUXIMAB [Suspect]
     Active Substance: ISATUXIMAB
     Indication: Monoclonal gammopathy
     Dosage: 10 MG/KG
     Route: 042
     Dates: start: 20210628, end: 20210628
  2. ISATUXIMAB [Suspect]
     Active Substance: ISATUXIMAB
     Dosage: 10 MG/KG
     Dates: start: 20211111, end: 20211111
  3. TACROLIMUS [Concomitant]
     Active Substance: TACROLIMUS
     Indication: Renal transplant
     Dosage: 2 MG, BID
     Route: 048
     Dates: start: 201710

REACTIONS (1)
  - Lymphadenitis viral [Not Recovered/Not Resolved]

NARRATIVE: CASE EVENT DATE: 20220521
